FAERS Safety Report 4620561-7 (Version None)
Quarter: 2005Q1

REPORT INFORMATION
  Report Type: 
  Country: None (occurrence: None)
  Receive Date: 20050324
  Receipt Date: 20050310
  Transmission Date: 20050727
  Serious: Yes (Other)
  Sender: FDA-Public Use
  Company Number: 2005-BP-04079BP

PATIENT
  Age: 67 Year
  Sex: Male

DRUGS (1)
  1. MIRAPEX [Suspect]
     Indication: RESTLESS LEGS SYNDROME
     Dosage: 1 MG, PO
     Route: 048
     Dates: start: 20020101

REACTIONS (4)
  - DISEASE RECURRENCE [None]
  - INSOMNIA [None]
  - NON-SMALL CELL LUNG CANCER [None]
  - RESTLESS LEGS SYNDROME [None]
